FAERS Safety Report 4406938-3 (Version None)
Quarter: 2004Q2

REPORT INFORMATION
  Report Type: 
  Country: None (occurrence: None)
  Receive Date: 20040618
  Receipt Date: 20040422
  Transmission Date: 20050107
  Serious: No
  Sender: FDA-Public Use
  Company Number: US-JNJFOC-20040405603

PATIENT
  Age: 26 Year
  Sex: Female
  Weight: 51.2565 kg

DRUGS (2)
  1. ORTHO EVRA [Suspect]
     Indication: CONTRACEPTION
     Dosage: 1 DOSE(S), 1 IN 1 WEEK, TRANSDERMAL
     Route: 062
     Dates: start: 20031201, end: 20040401
  2. PROVENTIL [Concomitant]

REACTIONS (1)
  - SKIN HYPERPIGMENTATION [None]
